FAERS Safety Report 4458204-8 (Version None)
Quarter: 2004Q3

REPORT INFORMATION
  Report Type: 
  Country: None (occurrence: None)
  Receive Date: 20040924
  Receipt Date: 20040804
  Transmission Date: 20050211
  Serious: Yes (Hospitalization)
  Sender: FDA-Public Use
  Company Number: US-ROCHE-376768

PATIENT
  Age: 38 Year
  Sex: Male

DRUGS (10)
  1. ACCUTANE [Suspect]
     Route: 048
     Dates: start: 19991203, end: 20000215
  2. ACCUTANE [Suspect]
     Route: 048
     Dates: start: 20000216, end: 20000217
  3. ACCUTANE [Suspect]
     Dosage: ON 12 MAY 2000 IT WAS REPORTED THAT THERAPY WAS ONGOING.
     Route: 048
     Dates: start: 20000218
  4. ACCUTANE [Suspect]
     Route: 048
     Dates: start: 20010416, end: 20010715
  5. ACCUTANE [Suspect]
     Route: 048
     Dates: start: 20010715
  6. ACCUTANE [Suspect]
     Route: 048
  7. ACCUTANE [Suspect]
     Route: 048
     Dates: start: 20020612, end: 20020725
  8. ACCUTANE [Suspect]
     Route: 048
     Dates: start: 20020726
  9. ACCUTANE [Suspect]
     Route: 048
     Dates: start: 20030217
  10. ACHROMYCIN [Concomitant]
     Dates: start: 19990615, end: 20010615

REACTIONS (29)
  - ABDOMINAL PAIN [None]
  - ABSCESS [None]
  - BLOOD CHOLESTEROL INCREASED [None]
  - BLOOD TRIGLYCERIDES INCREASED [None]
  - COLITIS [None]
  - DEHYDRATION [None]
  - DERMATITIS EXFOLIATIVE [None]
  - DIARRHOEA [None]
  - DIVERTICULAR PERFORATION [None]
  - DIVERTICULITIS [None]
  - DUODENITIS [None]
  - EPIGASTRIC DISCOMFORT [None]
  - EPISTAXIS [None]
  - FAT NECROSIS [None]
  - HEPATIC ENZYME INCREASED [None]
  - INFLAMMATION [None]
  - INFLAMMATORY BOWEL DISEASE [None]
  - INFLUENZA [None]
  - LIP DRY [None]
  - LOCALISED EXFOLIATION [None]
  - LOW DENSITY LIPOPROTEIN INCREASED [None]
  - LYMPHADENOPATHY [None]
  - NAUSEA [None]
  - PANCREATIC CARCINOMA [None]
  - PANCREATITIS [None]
  - PANCREATITIS ACUTE [None]
  - PANCREATITIS CHRONIC [None]
  - SWELLING [None]
  - VOMITING [None]
